FAERS Safety Report 7469439-4 (Version None)
Quarter: 2011Q2

REPORT INFORMATION
  Report Type: 
  Country: None (occurrence: None)
  Receive Date: 20110506
  Receipt Date: 20110506
  Transmission Date: 20111010
  Serious: Yes (Other)
  Sender: FDA-Public Use
  Company Number: None

PATIENT
  Age: 25 Year
  Sex: Female

DRUGS (2)
  1. EFFEXOR XR [Suspect]
     Indication: DEPRESSION
     Dosage: 150 MG  2 DAILY PO
     Route: 048
     Dates: start: 20000201, end: 20110505
  2. EFFEXOR XR [Suspect]
     Indication: OBSESSIVE-COMPULSIVE DISORDER
     Dosage: 150 MG  2 DAILY PO
     Route: 048
     Dates: start: 20000201, end: 20110505

REACTIONS (2)
  - HYPERHIDROSIS [None]
  - DRUG INEFFECTIVE [None]
